FAERS Safety Report 18427892 (Version 1)
Quarter: 2020Q4

REPORT INFORMATION
  Report Type: Spontaneous
  Country: US (occurrence: US)
  Receive Date: 20201026
  Receipt Date: 20201026
  Transmission Date: 20210114
  Serious: No
  Sender: FDA-Public Use
  Company Number: US-ABBVIE-19K-163-3176880-00

PATIENT
  Age: 22 Year
  Sex: Female

DRUGS (1)
  1. LUPRON [Suspect]
     Active Substance: LEUPROLIDE ACETATE
     Indication: ENDOMETRIOSIS
     Route: 065
     Dates: end: 201806

REACTIONS (6)
  - Bone loss [Unknown]
  - Memory impairment [Unknown]
  - Tooth disorder [Unknown]
  - Speech disorder [Unknown]
  - Alopecia [Not Recovered/Not Resolved]
  - Fracture [Unknown]
